FAERS Safety Report 15401169 (Version 4)
Quarter: 2021Q3

REPORT INFORMATION
  Report Type: Report from Study
  Country: None (occurrence: CA)
  Receive Date: 20180919
  Receipt Date: 20210913
  Transmission Date: 20211014
  Serious: Yes (Other)
  Sender: FDA-Public Use
  Company Number: CA-ABBVIE-18K-028-2489864-00

PATIENT
  Age: 61 Year
  Sex: Female

DRUGS (1)
  1. HUMIRA [Suspect]
     Active Substance: ADALIMUMAB
     Indication: CROHN^S DISEASE
     Route: 058
     Dates: start: 20140528

REACTIONS (4)
  - Proctalgia [Not Recovered/Not Resolved]
  - Diarrhoea [Unknown]
  - Weight decreased [Not Recovered/Not Resolved]
  - Surgical failure [Not Recovered/Not Resolved]

NARRATIVE: CASE EVENT DATE: 2018
